FAERS Safety Report 8815983 (Version 1)
Quarter: 2012Q4

REPORT INFORMATION
  Report Type: 
  Country: CO (occurrence: CO)
  Receive Date: 20120928
  Receipt Date: 20120928
  Transmission Date: 20130627
  Serious: Yes (Other)
  Sender: FDA-Public Use
  Company Number: CO-009507513-1209COL008381

PATIENT
  Age: 69 Year
  Sex: Male

DRUGS (4)
  1. MK-0517 [Suspect]
     Dosage: UNK, Once
     Route: 042
     Dates: start: 20120914
  2. DEXAMETHASONE [Concomitant]
  3. ONDANSETRON [Concomitant]
  4. RANITIDINE [Concomitant]

REACTIONS (1)
  - Injection site phlebitis [Recovered/Resolved]
